FAERS Safety Report 8006110-4 (Version None)
Quarter: 2011Q4

REPORT INFORMATION
  Report Type: 
  Country: None (occurrence: None)
  Receive Date: 20111226
  Receipt Date: 20111222
  Transmission Date: 20120403
  Serious: Yes (Hospitalization)
  Sender: FDA-Public Use
  Company Number: AU-PFIZER INC-2011310579

PATIENT
  Age: 67 Year
  Sex: Male
  Weight: 94 kg

DRUGS (5)
  1. MICARDIS [Concomitant]
     Dosage: UNK
  2. CARTIA XT [Concomitant]
     Dosage: UNK
  3. LERCANIDIPINE [Concomitant]
     Dosage: 10 MG, 1X/DAY
     Dates: end: 20111029
  4. VARENICLINE TARTRATE [Suspect]
     Dosage: UNK
     Dates: start: 20110917, end: 20111017
  5. LIPITOR [Concomitant]
     Dosage: UNK

REACTIONS (4)
  - AMNESIA [None]
  - CONFUSIONAL STATE [None]
  - DEHYDRATION [None]
  - HYPERHIDROSIS [None]
